FAERS Safety Report 17567114 (Version 3)
Quarter: 2020Q2

REPORT INFORMATION
  Report Type: Report from Study
  Country: CA (occurrence: CA)
  Receive Date: 20200320
  Receipt Date: 20200626
  Transmission Date: 20200713
  Serious: Yes (Hospitalization, Other)
  Sender: FDA-Public Use
  Company Number: CA-JNJFOC-20200318416

PATIENT
  Age: 68 Year
  Sex: Female
  Weight: 57.3 kg

DRUGS (1)
  1. REMICADE [Suspect]
     Active Substance: INFLIXIMAB
     Indication: CROHN^S DISEASE
     Dosage: ON 10-MAR-2020, PATIENT RECEIVED 29TH 600 MG INFLIXIMAB INFUSION
     Route: 042
     Dates: start: 20171031

REACTIONS (16)
  - Faeces discoloured [Unknown]
  - Tremor [Unknown]
  - Nephrolithiasis [Unknown]
  - Infusion related reaction [Unknown]
  - Dyspepsia [Unknown]
  - Ovarian mass [Not Recovered/Not Resolved]
  - Diarrhoea [Unknown]
  - Abdominal tenderness [Unknown]
  - Urosepsis [Unknown]
  - Vomiting [Unknown]
  - Incorrect drug administration rate [Unknown]
  - Ureteric obstruction [Unknown]
  - Feeling cold [Unknown]
  - Device dislocation [Unknown]
  - Frequent bowel movements [Unknown]
  - Off label use [Unknown]

NARRATIVE: CASE EVENT DATE: 202002
